FAERS Safety Report 11716366 (Version 2)
Quarter: 2015Q4

REPORT INFORMATION
  Report Type: Spontaneous
  Country: US (occurrence: US)
  Receive Date: 20151104
  Receipt Date: 20151110
  Transmission Date: 20160304
  Serious: No
  Sender: FDA-Public Use
  Company Number: US-ELI_LILLY_AND_COMPANY-US201107001111

PATIENT
  Sex: Female
  Weight: 64.4 kg

DRUGS (4)
  1. FORTEO [Suspect]
     Active Substance: TERIPARATIDE
     Dosage: 20 UG, QD
  2. FORTEO [Suspect]
     Active Substance: TERIPARATIDE
     Dosage: 20 UG, QD
  3. FORTEO [Suspect]
     Active Substance: TERIPARATIDE
     Indication: OSTEOPOROSIS
     Dosage: 20 UG, QD
     Dates: start: 20110324
  4. ZOLOFT [Concomitant]
     Active Substance: SERTRALINE HYDROCHLORIDE
     Indication: DEPRESSION

REACTIONS (5)
  - Weight loss poor [Unknown]
  - Sinus disorder [Unknown]
  - Weight increased [Unknown]
  - Cough [Unknown]
  - Injection site bruising [Unknown]
